FAERS Safety Report 7959438-8 (Version None)
Quarter: 2011Q4

REPORT INFORMATION
  Report Type: 
  Country: None (occurrence: None)
  Receive Date: 20111206
  Receipt Date: 20111202
  Transmission Date: 20120403
  Serious: No
  Sender: FDA-Public Use
  Company Number: US-PFIZER INC-2011295105

PATIENT
  Sex: Female
  Weight: 74.83 kg

DRUGS (12)
  1. PRISTIQ [Suspect]
     Indication: ANXIETY
     Dosage: 150 MG, DAILY
     Route: 048
     Dates: start: 20110201
  2. RISPERDAL [Suspect]
     Indication: DEPRESSION
  3. EMBEDA [Suspect]
     Indication: ANXIETY
     Dosage: 20 MG, DAILY
     Route: 048
     Dates: start: 20100401, end: 20100701
  4. PRISTIQ [Suspect]
     Indication: DEPRESSION
  5. SEROQUEL [Suspect]
     Indication: DEPRESSION
  6. PRAVASTATIN [Concomitant]
     Indication: BLOOD CHOLESTEROL INCREASED
     Dosage: 40 MG, DAILY
  7. EMBEDA [Suspect]
     Indication: DEPRESSION
  8. ZOLOFT [Suspect]
     Indication: ANXIETY
     Dosage: 100 MG, DAILY
     Route: 048
     Dates: start: 20091101
  9. ZOLOFT [Suspect]
     Indication: DEPRESSION
  10. SEROQUEL [Suspect]
     Indication: ANXIETY
     Dosage: 600 MG, DAILY
     Route: 048
  11. RISPERDAL [Suspect]
     Indication: ANXIETY
     Dosage: 4 MG, DAILY
     Route: 048
     Dates: start: 20100701, end: 20110201
  12. ATENOLOL [Concomitant]
     Indication: HYPERTENSION
     Dosage: 50 MG, DAILY

REACTIONS (1)
  - LIBIDO DECREASED [None]
